FAERS Safety Report 17355607 (Version 1)
Quarter: 2020Q1

REPORT INFORMATION
  Report Type: Spontaneous
  Country: US (occurrence: US)
  Receive Date: 20200131
  Receipt Date: 20200131
  Transmission Date: 20200409
  Serious: No
  Sender: FDA-Public Use
  Company Number: US-BEH-2020112166

PATIENT
  Age: 5 Year
  Sex: Female

DRUGS (1)
  1. HIZENTRA [Suspect]
     Active Substance: HUMAN IMMUNOGLOBULIN G
     Indication: IMMUNODEFICIENCY
     Dosage: 4 GRAM, QOW
     Route: 058
     Dates: start: 20200103

REACTIONS (4)
  - Abdominal pain upper [Unknown]
  - Urticaria [Unknown]
  - Pruritus [Unknown]
  - Skin weeping [Unknown]
